FAERS Safety Report 23129729 (Version 1)
Quarter: 2023Q4

REPORT INFORMATION
  Report Type: Spontaneous
  Country: US (occurrence: None)
  Receive Date: 20231030
  Receipt Date: 20231030
  Transmission Date: 20240110
  Serious: Yes (Other)
  Sender: FDA-Public Use
  Company Number: None

PATIENT
  Age: 23 Year
  Sex: Female
  Weight: 58.5 kg

DRUGS (1)
  1. CIPROFLOXACIN [Suspect]
     Active Substance: CIPROFLOXACIN
     Indication: Large intestine infection
     Dosage: OTHER QUANTITY : 1 TABLET(S);?FREQUENCY : TWICE A DAY;?
     Route: 048
     Dates: start: 20230710, end: 20230712

REACTIONS (7)
  - Tendon pain [None]
  - Gait inability [None]
  - Joint stiffness [None]
  - Arthralgia [None]
  - Arthralgia [None]
  - Back pain [None]
  - Piriformis syndrome [None]

NARRATIVE: CASE EVENT DATE: 20230712
